FAERS Safety Report 19145880 (Version 1)
Quarter: 2021Q2

REPORT INFORMATION
  Report Type: Spontaneous
  Country: US (occurrence: US)
  Receive Date: 20210416
  Receipt Date: 20210416
  Transmission Date: 20210717
  Serious: Yes (Death)
  Sender: FDA-Public Use
  Company Number: None

PATIENT
  Age: 78 Year
  Sex: Male
  Weight: 74.39 kg

DRUGS (8)
  1. SERTRALINE [Concomitant]
     Active Substance: SERTRALINE HYDROCHLORIDE
  2. VENCLEXTA 100MG [Concomitant]
  3. ZARXIO [Suspect]
     Active Substance: FILGRASTIM-SNDZ
     Indication: ACUTE MYELOID LEUKAEMIA
     Dosage: ?          OTHER FREQUENCY:QDX3 DAYS Q28DAYS;?
     Route: 058
     Dates: start: 20210209, end: 20210405
  4. FINASTERIDE 5MG [Concomitant]
     Active Substance: FINASTERIDE
  5. DECITABINE 50MG [Concomitant]
  6. CYTARABINE 100MG/5ML [Concomitant]
  7. TAMSULOSIN 0.4MG [Concomitant]
     Active Substance: TAMSULOSIN
  8. MEGESTROL [Suspect]
     Active Substance: MEGESTROL
     Indication: ACUTE MYELOID LEUKAEMIA
     Route: 048
     Dates: start: 20201222, end: 20210405

REACTIONS (1)
  - Death [None]

NARRATIVE: CASE EVENT DATE: 20210405
